FAERS Safety Report 8876128 (Version 1)
Quarter: 2012Q4

REPORT INFORMATION
  Report Type: 
  Country: FR (occurrence: FR)
  Receive Date: 20121023
  Receipt Date: 20121023
  Transmission Date: 20130627
  Serious: Yes (Hospitalization)
  Sender: FDA-Public Use
  Company Number: FR-ROCHE-1141756

PATIENT
  Age: 84 Year
  Sex: Female

DRUGS (1)
  1. XELODA [Suspect]
     Indication: COLON CANCER
     Route: 065
     Dates: start: 20120904, end: 20120914

REACTIONS (3)
  - Neutropenia [Recovered/Resolved]
  - Toxic skin eruption [Recovered/Resolved]
  - Mucosal inflammation [Recovered/Resolved]
